FAERS Safety Report 17248845 (Version 2)
Quarter: 2020Q1

REPORT INFORMATION
  Report Type: Spontaneous
  Country: US (occurrence: US)
  Receive Date: 20200108
  Receipt Date: 20200203
  Transmission Date: 20200409
  Serious: No
  Sender: FDA-Public Use
  Company Number: US-BAUSCH-BL-2019-066261

PATIENT
  Age: 78 Year
  Sex: Female

DRUGS (1)
  1. DORZOLAMIDE HYDROCHLORIDE AND TIMOLOL MALEATE OPHTHALMIC SOLN 2%/0.5% [Suspect]
     Active Substance: DORZOLAMIDE HYDROCHLORIDE\TIMOLOL MALEATE
     Indication: GLAUCOMA
     Dosage: 10 TO 15 YEARS AGO, ONE DROP IN BOTH EYES TWICE DAILY
     Route: 047

REACTIONS (4)
  - Pruritus [Recovered/Resolved]
  - Foreign body sensation in eyes [Recovered/Resolved]
  - Drug hypersensitivity [Recovered/Resolved]
  - Skin discolouration [Recovered/Resolved]
